FAERS Safety Report 7930491-0 (Version None)
Quarter: 2011Q4

REPORT INFORMATION
  Report Type: 
  Country: None (occurrence: None)
  Receive Date: 20111117
  Receipt Date: 20111102
  Transmission Date: 20120403
  Serious: Yes (Other)
  Sender: FDA-Public Use
  Company Number: 2011HGS-002676

PATIENT
  Age: 62 Year
  Sex: Female
  Weight: 97 kg

DRUGS (3)
  1. AZATHIOPRINE (AZATHIOPRINE) (AZATHIOPRINE) [Concomitant]
  2. BENLYSTA [Suspect]
     Indication: SYSTEMIC LUPUS ERYTHEMATOSUS
     Dosage: 920 MG, 1 IN, INTRAVENOUS (NOT OTHERWISE SPECIFIED)
     Dates: start: 20110912
  3. QUENSYL (HYDROXYCHLOROQUINE SULFATE) (HYDROXYCHLOROQUINE SULFATE) [Concomitant]

REACTIONS (2)
  - LEUKOPENIA [None]
  - NEUTROPENIA [None]
